FAERS Safety Report 23262050 (Version 9)
Quarter: 2024Q1

REPORT INFORMATION
  Report Type: Spontaneous
  Country: US (occurrence: US)
  Receive Date: 20231205
  Receipt Date: 20240214
  Transmission Date: 20240410
  Serious: No
  Sender: FDA-Public Use
  Company Number: US-PFIZER INC-202300325157

PATIENT
  Age: 67 Year
  Sex: Female
  Weight: 67.13 kg

DRUGS (2)
  1. ESTRING [Suspect]
     Active Substance: ESTRADIOL
     Indication: Vulvovaginal dryness
     Dosage: ONE RING INSERTED VAGINALLY EVERY 3 MONTHS
     Route: 067
     Dates: start: 2021
  2. ESTRING [Suspect]
     Active Substance: ESTRADIOL
     Dosage: 2MG ESTRADIOL USP, TO DELIVER 7.5 MCG PER DAY OVER 90 DAYS
     Dates: start: 2023

REACTIONS (3)
  - Device use issue [Unknown]
  - Product availability issue [Unknown]
  - Therapy interrupted [Unknown]
